FAERS Safety Report 5758441-6 (Version None)
Quarter: 2008Q2

REPORT INFORMATION
  Report Type: 
  Country: None (occurrence: None)
  Receive Date: 20080604
  Receipt Date: 20080529
  Transmission Date: 20081010
  Serious: Yes (Other)
  Sender: FDA-Public Use
  Company Number: NZ-AVENTIS-200811791GDDC

PATIENT
  Age: 51 Year
  Sex: Female

DRUGS (5)
  1. ARAVA [Suspect]
     Indication: RHEUMATOID ARTHRITIS
     Route: 048
     Dates: start: 20020701, end: 20080101
  2. ARAVA [Suspect]
     Route: 048
     Dates: start: 20080101
  3. MYOCRISIN [Concomitant]
     Dosage: DOSE: UNK
  4. BRUFEN [Concomitant]
     Dosage: DOSE: UNK
  5. AMITRIPTYLINE HCL [Concomitant]
     Dosage: DOSE: UNK

REACTIONS (4)
  - CARDIAC FAILURE [None]
  - CONGESTIVE CARDIOMYOPATHY [None]
  - DYSPNOEA [None]
  - JOINT SWELLING [None]
